FAERS Safety Report 22053530 (Version 1)
Quarter: 2023Q1

REPORT INFORMATION
  Report Type: Spontaneous
  Country: US (occurrence: None)
  Receive Date: 20230301
  Receipt Date: 20230301
  Transmission Date: 20230418
  Serious: No
  Sender: FDA-Public Use
  Company Number: None

PATIENT
  Sex: 0

DRUGS (2)
  1. AZACITIDINE [Suspect]
     Active Substance: AZACITIDINE
  2. ROMIDEPSIN [Suspect]
     Active Substance: ROMIDEPSIN

REACTIONS (3)
  - Disease recurrence [None]
  - Product used for unknown indication [None]
  - Nonspecific reaction [None]
